FAERS Safety Report 14653584 (Version 1)
Quarter: 2018Q1

REPORT INFORMATION
  Report Type: Spontaneous
  Country: US (occurrence: US)
  Receive Date: 20180316
  Receipt Date: 20180316
  Transmission Date: 20180509
  Serious: Yes (Disabling)
  Sender: FDA-Public Use
  Company Number: None

PATIENT
  Age: 46 Year
  Sex: Male
  Weight: 85.5 kg

DRUGS (7)
  1. ZINC. [Concomitant]
     Active Substance: ZINC
  2. IBUPROFEN. [Concomitant]
     Active Substance: IBUPROFEN
  3. COUGH SYRUP [Concomitant]
     Active Substance: DEXTROMETHORPHAN HYDROBROMIDE\GUAIFENESIN
  4. MUCINEX [Concomitant]
     Active Substance: GUAIFENESIN
  5. VITAMIN C [Concomitant]
     Active Substance: ASCORBIC ACID
  6. ALKA-SELTZER PLUS NOS [Suspect]
     Active Substance: ACETAMINOPHEN\ASPIRIN\CHLORPHENIRAMINE MALEATE\DEXTROMETHORPHAN HYDROBROMIDE\DIPHENHYDRAMINE HYDROCHLORIDE\DOXYLAMINE SUCCINATE\PHENYLEPHRINE BITARTRATE\PHENYLEPHRINE HYDROCHLORIDE
     Indication: SINUS DISORDER
     Dosage: ?          QUANTITY:2 TABLET(S);?
     Route: 048
  7. ALKA-SELTZER PLUS NOS [Suspect]
     Active Substance: ACETAMINOPHEN\ASPIRIN\CHLORPHENIRAMINE MALEATE\DEXTROMETHORPHAN HYDROBROMIDE\DIPHENHYDRAMINE HYDROCHLORIDE\DOXYLAMINE SUCCINATE\PHENYLEPHRINE BITARTRATE\PHENYLEPHRINE HYDROCHLORIDE
     Indication: NASOPHARYNGITIS
     Dosage: ?          QUANTITY:2 TABLET(S);?
     Route: 048

REACTIONS (8)
  - Oropharyngeal pain [None]
  - Product quality issue [None]
  - Impaired work ability [None]
  - Cough [None]
  - Headache [None]
  - Pulmonary congestion [None]
  - Bronchitis [None]
  - Drug ineffective [None]

NARRATIVE: CASE EVENT DATE: 20180201
